FAERS Safety Report 4704470-0 (Version None)
Quarter: 2005Q2

REPORT INFORMATION
  Report Type: 
  Country: None (occurrence: None)
  Receive Date: 20050628
  Receipt Date: 20050609
  Transmission Date: 20051028
  Serious: Yes (Life-Threatening, Hospitalization, Other)
  Sender: FDA-Public Use
  Company Number: JP_050406408

PATIENT
  Age: 50 Year
  Sex: Female
  Weight: 65 kg

DRUGS (7)
  1. ZYPREXA [Suspect]
     Indication: MANIA
     Dosage: 15 MG DAY
     Dates: start: 20020528, end: 20030725
  2. CLONAZEPAM [Concomitant]
  3. HALCION [Concomitant]
  4. SILECE (FLUNITRAZEPAM EG0 [Concomitant]
  5. CARBIDOPA W/ LEVODOPA [Concomitant]
  6. PURSENNID [Concomitant]
  7. VALPROID ACID [Concomitant]

REACTIONS (21)
  - ABNORMAL BEHAVIOUR [None]
  - AGITATION [None]
  - ALANINE AMINOTRANSFERASE INCREASED [None]
  - ASPARTATE AMINOTRANSFERASE INCREASED [None]
  - BASAL GANGLION DEGENERATION [None]
  - CARDIAC DISORDER [None]
  - CEREBRAL ATROPHY [None]
  - DEPRESSED LEVEL OF CONSCIOUSNESS [None]
  - EXCITABILITY [None]
  - HYPERHIDROSIS [None]
  - HYPOXIA [None]
  - INFUSION RELATED REACTION [None]
  - LUNG DISORDER [None]
  - MUSCLE RIGIDITY [None]
  - NEUROLEPTIC MALIGNANT SYNDROME [None]
  - PULMONARY EMBOLISM [None]
  - RADIOISOTOPE SCAN ABNORMAL [None]
  - RESTLESSNESS [None]
  - TACHYCARDIA [None]
  - WEIGHT INCREASED [None]
  - WHITE BLOOD CELL COUNT INCREASED [None]
